FAERS Safety Report 10228823 (Version 2)
Quarter: 2014Q3

REPORT INFORMATION
  Report Type: Spontaneous
  Country: ES (occurrence: PT)
  Receive Date: 20140610
  Receipt Date: 20140711
  Transmission Date: 20150326
  Serious: Yes (Other)
  Sender: FDA-Public Use
  Company Number: PT-FRI-1000068020

PATIENT
  Age: 62 Year
  Sex: Male

DRUGS (3)
  1. PARACETAMOL 1G [Concomitant]
     Indication: PAIN
  2. ACLIDINIUM [Suspect]
     Active Substance: ACLIDINIUM BROMIDE
     Indication: CHRONIC OBSTRUCTIVE PULMONARY DISEASE
     Dosage: 644 MCG
     Dates: start: 20140507, end: 20140511
  3. OLSAR PLUS 40+12.5 MG [Concomitant]
     Indication: HYPERTENSION
     Dates: start: 2013

REACTIONS (2)
  - Tongue oedema [Recovered/Resolved]
  - Oropharyngeal swelling [Recovered/Resolved]

NARRATIVE: CASE EVENT DATE: 20140510
